FAERS Safety Report 21630547 (Version 1)
Quarter: 2022Q4

REPORT INFORMATION
  Report Type: Report from Study
  Country: US (occurrence: US)
  Receive Date: 20221123
  Receipt Date: 20221123
  Transmission Date: 20230113
  Serious: No
  Sender: FDA-Public Use
  Company Number: US-ABBVIE-22K-163-4467899-00

PATIENT
  Sex: Male

DRUGS (3)
  1. SKYRIZI [Suspect]
     Active Substance: RISANKIZUMAB-RZAA
     Indication: Psoriasis
     Dosage: WEEK 0
     Route: 058
     Dates: start: 20220428, end: 20220428
  2. SKYRIZI [Suspect]
     Active Substance: RISANKIZUMAB-RZAA
     Dosage: FORM STRENGTH: 150 MILLIGRAM?WEEK 4 AND EVERY 12 WEEKS THEREAFTER.
     Route: 058
     Dates: start: 20220620
  3. SKYRIZI [Suspect]
     Active Substance: RISANKIZUMAB-RZAA
     Dosage: FORM STRENGTH: 150 MILLIGRAM
     Route: 058

REACTIONS (8)
  - Rash macular [Unknown]
  - Overweight [Unknown]
  - General physical health deterioration [Not Recovered/Not Resolved]
  - Psoriasis [Unknown]
  - Migraine [Unknown]
  - Pain in extremity [Unknown]
  - Arthritis [Unknown]
  - Muscle spasms [Unknown]
